FAERS Safety Report 16034372 (Version 1)
Quarter: 2019Q1

REPORT INFORMATION
  Report Type: Spontaneous
  Country: US (occurrence: US)
  Receive Date: 20190305
  Receipt Date: 20190305
  Transmission Date: 20190418
  Serious: Yes (Life-Threatening, Hospitalization)
  Sender: FDA-Public Use
  Company Number: None

PATIENT
  Age: 69 Year
  Sex: Female
  Weight: 78.8 kg

DRUGS (4)
  1. DOXORUBICIN 95MG [Concomitant]
     Dates: start: 20190226, end: 20190226
  2. FULPHILA [Suspect]
     Active Substance: PEGFILGRASTIM-JMDB
     Indication: PROPHYLAXIS
     Dosage: ?          OTHER FREQUENCY:ONCE;?
     Route: 058
  3. CYTOXAN 955MG [Concomitant]
     Dates: start: 20190226, end: 20190226
  4. DOCETAXEL 143MG [Concomitant]
     Dates: start: 20190226, end: 20190226

REACTIONS (3)
  - Drug ineffective [None]
  - Neutrophil count decreased [None]
  - White blood cell count decreased [None]

NARRATIVE: CASE EVENT DATE: 20190227
